FAERS Safety Report 18402565 (Version 1)
Quarter: 2020Q4

REPORT INFORMATION
  Report Type: Spontaneous
  Country: US (occurrence: US)
  Receive Date: 20201019
  Receipt Date: 20201019
  Transmission Date: 20210114
  Serious: Yes (Other)
  Sender: FDA-Public Use
  Company Number: US-ELI_LILLY_AND_COMPANY-US202010003996

PATIENT
  Age: 66 Year
  Sex: Female
  Weight: 75 kg

DRUGS (10)
  1. ADCIRCA [Suspect]
     Active Substance: TADALAFIL
     Indication: PULMONARY ARTERIAL HYPERTENSION
     Dosage: UNK, UNKNOWN
     Route: 065
     Dates: start: 201909
  2. ADEMPAS [Suspect]
     Active Substance: RIOCIGUAT
     Dosage: 0.5 MG, UNKNOWN
     Route: 065
  3. OPSUMIT [Suspect]
     Active Substance: MACITENTAN
     Dosage: 10 MG, DAILY
     Route: 048
  4. OPSUMIT [Suspect]
     Active Substance: MACITENTAN
     Dosage: 10 MG, DAILY
     Route: 048
  5. ADEMPAS [Suspect]
     Active Substance: RIOCIGUAT
     Dosage: 1 MG, TID
     Route: 065
  6. OPSUMIT [Suspect]
     Active Substance: MACITENTAN
     Indication: PULMONARY ARTERIAL HYPERTENSION
     Dosage: 10 MG, DAILY
     Route: 048
  7. UPTRAVI [Suspect]
     Active Substance: SELEXIPAG
     Indication: PRODUCT USED FOR UNKNOWN INDICATION
     Dosage: 200 UG, BID
     Route: 048
  8. TYVASO [Suspect]
     Active Substance: TREPROSTINIL
     Indication: PRODUCT USED FOR UNKNOWN INDICATION
     Dosage: 6 DOSAGE FORM (BREATHS), QID
     Route: 048
     Dates: start: 20200731
  9. ADEMPAS [Suspect]
     Active Substance: RIOCIGUAT
     Indication: PRODUCT USED FOR UNKNOWN INDICATION
     Dosage: 1 MG, TID
     Route: 065
     Dates: start: 20190816
  10. ELIQUIS [Concomitant]
     Active Substance: APIXABAN
     Indication: PRODUCT USED FOR UNKNOWN INDICATION

REACTIONS (11)
  - Palpitations [Not Recovered/Not Resolved]
  - Chest discomfort [Unknown]
  - Weight increased [Unknown]
  - Myalgia [Unknown]
  - Oxygen saturation decreased [Unknown]
  - Walking distance test abnormal [Not Recovered/Not Resolved]
  - Musculoskeletal pain [Unknown]
  - Feeling abnormal [Not Recovered/Not Resolved]
  - Headache [Unknown]
  - Back pain [Unknown]
  - Pyrexia [Not Recovered/Not Resolved]

NARRATIVE: CASE EVENT DATE: 201909
